FAERS Safety Report 5799382-8 (Version None)
Quarter: 2008Q3

REPORT INFORMATION
  Report Type: 
  Country: None (occurrence: None)
  Receive Date: 20080703
  Receipt Date: 20080625
  Transmission Date: 20090109
  Serious: Yes (Hospitalization, Other)
  Sender: FDA-Public Use
  Company Number: US-PFIZER INC-2008053865

PATIENT
  Sex: Male
  Weight: 88.181 kg

DRUGS (6)
  1. VIAGRA [Suspect]
     Indication: REHABILITATION THERAPY
     Dates: start: 20080101, end: 20080501
  2. DIOVAN [Concomitant]
  3. NEXIUM [Concomitant]
  4. ZETIA [Concomitant]
  5. ZOCOR [Concomitant]
  6. ASPIRIN [Concomitant]

REACTIONS (2)
  - MENTAL STATUS CHANGES [None]
  - TRANSIENT ISCHAEMIC ATTACK [None]
